FAERS Safety Report 11587769 (Version 3)
Quarter: 2016Q4

REPORT INFORMATION
  Report Type: Report from Study
  Country: None (occurrence: US)
  Receive Date: 20151001
  Receipt Date: 20161111
  Transmission Date: 20170206
  Serious: Yes (Hospitalization, Other)
  Sender: FDA-Public Use
  Company Number: US-ABBVIE-13P-163-1096514-00

PATIENT
  Age: 48 Year
  Sex: Female

DRUGS (30)
  1. BACLOFEN. [Concomitant]
     Active Substance: BACLOFEN
     Indication: PRODUCT USED FOR UNKNOWN INDICATION
     Dosage: 3 TIMES A DAY, AS NEEDED
  2. IBUPROFEN. [Concomitant]
     Active Substance: IBUPROFEN
     Indication: PRODUCT USED FOR UNKNOWN INDICATION
     Dosage: UP TO THREE TIMES A DAY, AS NEEDED
  3. CO Q10 ENZYME [Concomitant]
     Indication: PRODUCT USED FOR UNKNOWN INDICATION
  4. GLUCOPHAGE [Concomitant]
     Active Substance: METFORMIN HYDROCHLORIDE
     Indication: TYPE 2 DIABETES MELLITUS
     Route: 048
  5. ABILIFY [Suspect]
     Active Substance: ARIPIPRAZOLE
     Indication: PRODUCT USED FOR UNKNOWN INDICATION
     Route: 065
     Dates: start: 2011
  6. ABILIFY [Suspect]
     Active Substance: ARIPIPRAZOLE
     Route: 065
  7. VITAMIN D [Concomitant]
     Active Substance: CHOLECALCIFEROL
     Indication: PRODUCT USED FOR UNKNOWN INDICATION
  8. NITROGLYCERINE [Concomitant]
     Active Substance: NITROGLYCERIN
     Indication: MIGRAINE
  9. ONGLYZA [Concomitant]
     Active Substance: SAXAGLIPTIN HYDROCHLORIDE
     Indication: DIABETES MELLITUS
  10. ZYRTEC [Concomitant]
     Active Substance: CETIRIZINE HYDROCHLORIDE
     Indication: PRODUCT USED FOR UNKNOWN INDICATION
  11. PROTONIX [Concomitant]
     Active Substance: PANTOPRAZOLE SODIUM
     Indication: PRODUCT USED FOR UNKNOWN INDICATION
  12. COMPAZINE [Concomitant]
     Active Substance: PROCHLORPERAZINE MALEATE
     Indication: NAUSEA
     Dosage: FOUR TIMES DAILY, AS NEEDED
  13. APIDRA INSULIN PUMP [Concomitant]
     Indication: PRODUCT USED FOR UNKNOWN INDICATION
  14. STOOL SOFTENER (DOCUSATE CALCIUM) [Concomitant]
     Active Substance: DOCUSATE CALCIUM
     Indication: PRODUCT USED FOR UNKNOWN INDICATION
  15. LUPRON DEPOT [Suspect]
     Active Substance: LEUPROLIDE ACETATE
     Indication: ENDOMETRIOSIS
     Route: 030
     Dates: start: 2003
  16. LUPRON DEPOT [Suspect]
     Active Substance: LEUPROLIDE ACETATE
     Route: 030
     Dates: start: 20130531
  17. MORPHINE PUMP [Suspect]
     Active Substance: MORPHINE
     Indication: MYALGIA
     Route: 065
     Dates: start: 2002, end: 2008
  18. HUMALOG INSULIN PUMP [Concomitant]
     Indication: TYPE 2 DIABETES MELLITUS
     Route: 058
  19. MS CONTIN [Concomitant]
     Active Substance: MORPHINE SULFATE
     Indication: MYALGIA
     Dosage: TWICE DAILY, AS NEEDED
  20. OXYCODONE [Concomitant]
     Active Substance: OXYCODONE
     Indication: MYALGIA
     Dosage: UP TO THREE TIMES A DAY, AS NEEDED
  21. LEXAPRO [Concomitant]
     Active Substance: ESCITALOPRAM OXALATE
     Indication: PRODUCT USED FOR UNKNOWN INDICATION
  22. ALBUTEROL PROAIR HFA [Concomitant]
     Indication: PRODUCT USED FOR UNKNOWN INDICATION
     Dosage: 1 TO 2 PUFFS EVERY SIX HOURS AS NEEDED
  23. LYRICA [Concomitant]
     Active Substance: PREGABALIN
     Indication: PRODUCT USED FOR UNKNOWN INDICATION
  24. LUPRON DEPOT [Suspect]
     Active Substance: LEUPROLIDE ACETATE
     Route: 030
     Dates: start: 20150815
  25. NITROGLYCERINE [Concomitant]
     Active Substance: NITROGLYCERIN
     Indication: MUSCULOSKELETAL CHEST PAIN
     Dosage: UP TO THREE DOSES A DAY, AS NEEDED
  26. VALIUM [Concomitant]
     Active Substance: DIAZEPAM
     Indication: PRODUCT USED FOR UNKNOWN INDICATION
     Dosage: UP TO THREE TIMES A DAY, EVERY EIGHT HOURS, AS NEEDED
  27. ABILIFY [Concomitant]
     Active Substance: ARIPIPRAZOLE
     Indication: PRODUCT USED FOR UNKNOWN INDICATION
  28. SYNTHROID [Concomitant]
     Active Substance: LEVOTHYROXINE SODIUM
     Indication: HYPOTHYROIDISM
  29. SINGULAIR [Concomitant]
     Active Substance: MONTELUKAST SODIUM
     Indication: PRODUCT USED FOR UNKNOWN INDICATION
  30. IMITREX [Concomitant]
     Active Substance: SUMATRIPTAN SUCCINATE
     Indication: MIGRAINE
     Dosage: AS NEEDED, UP TO 2 SHOTS A DAY

REACTIONS (43)
  - Muscle abscess [Recovering/Resolving]
  - Mitochondrial myopathy [Not Recovered/Not Resolved]
  - Limb crushing injury [Unknown]
  - Glaucoma [Not Recovered/Not Resolved]
  - Vaginal haemorrhage [Not Recovered/Not Resolved]
  - Muscle abscess [Recovered/Resolved]
  - Bursitis [Recovered/Resolved]
  - Pyrexia [Recovered/Resolved]
  - Pleurisy [Recovering/Resolving]
  - Back pain [Unknown]
  - Abdominal pain upper [Unknown]
  - Hepatic cirrhosis [Not Recovered/Not Resolved]
  - Pulmonary oedema [Recovering/Resolving]
  - Drug effect delayed [Recovered/Resolved]
  - Post lumbar puncture syndrome [Unknown]
  - Lower limb fracture [Unknown]
  - Uterine pain [Unknown]
  - Bipolar disorder [Unknown]
  - Abdominal mass [Unknown]
  - Tenderness [Not Recovered/Not Resolved]
  - Endometriosis [Not Recovered/Not Resolved]
  - Vaginal infection [Recovered/Resolved]
  - Lower limb fracture [Recovered/Resolved]
  - Hepatic cirrhosis [Unknown]
  - Hepatic pain [Not Recovered/Not Resolved]
  - Hepatic enzyme increased [Recovering/Resolving]
  - Adnexa uteri pain [Unknown]
  - Platelet count decreased [Recovering/Resolving]
  - Hot flush [Not Recovered/Not Resolved]
  - Dyspareunia [Not Recovered/Not Resolved]
  - Migraine [Recovered/Resolved]
  - Activities of daily living impaired [Unknown]
  - Platelet count decreased [Not Recovered/Not Resolved]
  - Fungal infection [Recovered/Resolved]
  - Road traffic accident [Recovered/Resolved]
  - Somnolence [Unknown]
  - Kidney infection [Unknown]
  - Cystitis [Recovered/Resolved]
  - Drug dose omission [Not Recovered/Not Resolved]
  - Endometriosis [Not Recovered/Not Resolved]
  - Endometriosis [Unknown]
  - Cold sweat [Not Recovered/Not Resolved]
  - Vulvovaginal dryness [Not Recovered/Not Resolved]

NARRATIVE: CASE EVENT DATE: 2003
